FAERS Safety Report 8254411-7 (Version None)
Quarter: 2012Q2

REPORT INFORMATION
  Report Type: 
  Country: None (occurrence: None)
  Receive Date: 20120402
  Receipt Date: 20120328
  Transmission Date: 20120825
  Serious: Yes (Life-Threatening)
  Sender: FDA-Public Use
  Company Number: DE-BRISTOL-MYERS SQUIBB COMPANY-16487829

PATIENT
  Age: 70 Year
  Sex: Male
  Weight: 85 kg

DRUGS (3)
  1. CISPLATIN [Suspect]
     Indication: NON-SMALL CELL LUNG CANCER
     Dosage: LAST INF ON 8MAR12 NO OF INF:4 DOSE REDUCED TO 60MG/M2
     Route: 042
     Dates: start: 20120105, end: 20120108
  2. GEMCITABINE [Suspect]
     Indication: NON-SMALL CELL LUNG CANCER
     Dosage: NO OF INF:8 1250MG/M2 DAY 1 + DAY 8 OF DAY EACH 3 WK CYCLE DOSE REDUCED TO 1000MG/M2
     Route: 042
     Dates: start: 20120105, end: 20120315
  3. CETUXIMAB [Suspect]
     Indication: NON-SMALL CELL LUNG CANCER
     Dosage: STRENGTH:5MG/ML LAST INF ON 15MAR12 NO OF INF:11
     Route: 042
     Dates: start: 20120105

REACTIONS (1)
  - NEUTROPENIA [None]
